FAERS Safety Report 7906733-4 (Version None)
Quarter: 2011Q4

REPORT INFORMATION
  Report Type: 
  Country: None (occurrence: None)
  Receive Date: 20111110
  Receipt Date: 20111102
  Transmission Date: 20120403
  Serious: Yes (Other)
  Sender: FDA-Public Use
  Company Number: IT-JNJFOC-20111102362

PATIENT
  Age: 5 Year
  Sex: Male
  Weight: 20 kg

DRUGS (1)
  1. RISPERDAL [Suspect]
     Indication: PRODUCT USED FOR UNKNOWN INDICATION
     Route: 048

REACTIONS (4)
  - DYSTONIA [None]
  - INCORRECT DOSE ADMINISTERED [None]
  - DYSKINESIA [None]
  - SLUGGISHNESS [None]
